FAERS Safety Report 10268942 (Version 2)
Quarter: 2014Q3

REPORT INFORMATION
  Report Type: Spontaneous
  Country: CN (occurrence: CN)
  Receive Date: 20140630
  Receipt Date: 20140915
  Transmission Date: 20150326
  Serious: Yes (Other)
  Sender: FDA-Public Use
  Company Number: CN-ELI_LILLY_AND_COMPANY-CN201406009683

PATIENT
  Age: 51 Year
  Sex: Male

DRUGS (6)
  1. ALPRAZOLAM. [Concomitant]
     Active Substance: ALPRAZOLAM
     Indication: MEIGE^S SYNDROME
     Dosage: 0.4 MG, EACH EVENING
  2. ALPRAZOLAM. [Concomitant]
     Active Substance: ALPRAZOLAM
     Indication: INSOMNIA
  3. TRIHEXYPHENIDYL [Concomitant]
     Active Substance: TRIHEXYPHENIDYL
     Indication: MEIGE^S SYNDROME
     Dosage: 2 MG, BID
  4. OLANZAPINE. [Suspect]
     Active Substance: OLANZAPINE
     Indication: MEIGE^S SYNDROME
     Dosage: 2.5 MG, EACH EVENING
     Route: 065
  5. OLANZAPINE. [Suspect]
     Active Substance: OLANZAPINE
     Indication: INSOMNIA
  6. TRIHEXYPHENIDYL [Concomitant]
     Active Substance: TRIHEXYPHENIDYL
     Indication: INSOMNIA

REACTIONS (3)
  - Off label use [Unknown]
  - Restless legs syndrome [Recovered/Resolved]
  - Dyskinesia [Unknown]
